FAERS Safety Report 17426943 (Version 1)
Quarter: 2020Q1

REPORT INFORMATION
  Report Type: Spontaneous
  Country: FR (occurrence: FR)
  Receive Date: 20200218
  Receipt Date: 20200218
  Transmission Date: 20200409
  Serious: Yes (Hospitalization)
  Sender: FDA-Public Use
  Company Number: FR-ACCORD-172718

PATIENT
  Age: 82 Year
  Sex: Male
  Weight: 59 kg

DRUGS (8)
  1. ACETYLSALICYLIC ACID [Concomitant]
     Active Substance: ASPIRIN
  2. CARBOPLATIN ACCORD [Suspect]
     Active Substance: CARBOPLATIN
     Indication: LUNG ADENOCARCINOMA
     Dosage: 10 MG / ML,LAST ADMINISTERED 01-JUL-2019
     Route: 041
     Dates: start: 20190423
  3. OXYCODONE [Concomitant]
     Active Substance: OXYCODONE
  4. PREDNISOLONE. [Concomitant]
     Active Substance: PREDNISOLONE
  5. PREGABALIN. [Concomitant]
     Active Substance: PREGABALIN
  6. KARDEGIC [Concomitant]
     Active Substance: ASPIRIN DL-LYSINE
  7. PACLITAXEL AHCL [Suspect]
     Active Substance: PACLITAXEL
     Indication: LUNG ADENOCARCINOMA
     Dosage: 6 MG / ML, LAST ADMINISTERED-08-JUL-2019
     Route: 042
     Dates: start: 20190423
  8. PARACETAMOL [Concomitant]
     Active Substance: ACETAMINOPHEN

REACTIONS (1)
  - Acute kidney injury [Recovered/Resolved]

NARRATIVE: CASE EVENT DATE: 201907
